FAERS Safety Report 8510227-5 (Version None)
Quarter: 2012Q3

REPORT INFORMATION
  Report Type: 
  Country: None (occurrence: None)
  Receive Date: 20120713
  Receipt Date: 20120710
  Transmission Date: 20120928
  Serious: Yes (Other)
  Sender: FDA-Public Use
  Company Number: BR-PFIZER INC-2012166120

PATIENT
  Age: 69 Year
  Sex: Female
  Weight: 75 kg

DRUGS (8)
  1. LOVAZA [Concomitant]
     Indication: BLOOD CHOLESTEROL
     Dosage: UNK
  2. LYRICA [Suspect]
     Indication: FIBROMYALGIA
     Dosage: 150 MG, 1X/DAY
     Route: 048
     Dates: start: 20120301
  3. CALCIUM [Concomitant]
     Indication: ARTHRALGIA
     Dosage: UNK
  4. CALCIUM [Concomitant]
     Indication: OSTEOARTHRITIS
  5. REUQUINOL [Concomitant]
     Indication: OSTEOARTHRITIS
  6. REUQUINOL [Concomitant]
     Indication: MUSCULOSKELETAL PAIN
     Dosage: UNK
  7. LETROZOLE [Concomitant]
     Indication: BREAST CANCER
     Dosage: UNK
  8. LOSARTAN [Concomitant]
     Indication: HYPERTENSION
     Dosage: UNK

REACTIONS (2)
  - URINARY TRACT INFECTION [None]
  - INSOMNIA [None]
